FAERS Safety Report 15606229 (Version 1)
Quarter: 2018Q4

REPORT INFORMATION
  Report Type: Spontaneous
  Country: US (occurrence: US)
  Receive Date: 20181106
  Receipt Date: 20181106
  Transmission Date: 20190205
  Serious: Yes (Other)
  Sender: FDA-Public Use
  Company Number: None

PATIENT
  Age: 78 Year
  Sex: Male
  Weight: 82.2 kg

DRUGS (2)
  1. VANCOMYCIN 10 GRAM FRESENIUS KABI USA [Suspect]
     Active Substance: VANCOMYCIN
     Indication: ARTHRITIS BACTERIAL
     Route: 042
     Dates: start: 20181003, end: 20181025
  2. VANCOMYCIN 1 GRAM FRESENIUS KABI USA [Suspect]
     Active Substance: VANCOMYCIN
     Indication: ARTHRITIS BACTERIAL
     Route: 042
     Dates: start: 20180925, end: 20181003

REACTIONS (7)
  - Blood creatinine increased [None]
  - Blood urea increased [None]
  - Muscle spasms [None]
  - Therapy cessation [None]
  - Nausea [None]
  - Drug level above therapeutic [None]
  - Joint swelling [None]

NARRATIVE: CASE EVENT DATE: 20181025
